FAERS Safety Report 8399419-6 (Version None)
Quarter: 2012Q2

REPORT INFORMATION
  Report Type: 
  Country: None (occurrence: None)
  Receive Date: 20120323
  Receipt Date: 20110202
  Transmission Date: 20120825
  Serious: Yes (Hospitalization)
  Sender: FDA-Public Use
  Company Number: 163-21880-11020705

PATIENT
  Sex: Male

DRUGS (4)
  1. REVLIMID [Suspect]
     Indication: MULTIPLE MYELOMA
     Dosage: 25 MG, DAILY FOR 21 DAYS, PO 15 MG, DAILY FOR 21 DAYS, PO 5 MG, DAILY FOR 21 DAYS, PO 10 MG, 1 IN 1
     Route: 048
     Dates: start: 20070101
  2. REVLIMID [Suspect]
     Indication: MULTIPLE MYELOMA
     Dosage: 25 MG, DAILY FOR 21 DAYS, PO 15 MG, DAILY FOR 21 DAYS, PO 5 MG, DAILY FOR 21 DAYS, PO 10 MG, 1 IN 1
     Route: 048
     Dates: start: 20100301
  3. REVLIMID [Suspect]
     Indication: MULTIPLE MYELOMA
     Dosage: 25 MG, DAILY FOR 21 DAYS, PO 15 MG, DAILY FOR 21 DAYS, PO 5 MG, DAILY FOR 21 DAYS, PO 10 MG, 1 IN 1
     Route: 048
     Dates: start: 20101001
  4. REVLIMID [Suspect]
     Indication: MULTIPLE MYELOMA
     Dosage: 25 MG, DAILY FOR 21 DAYS, PO 15 MG, DAILY FOR 21 DAYS, PO 5 MG, DAILY FOR 21 DAYS, PO 10 MG, 1 IN 1
     Route: 048
     Dates: start: 20061101

REACTIONS (1)
  - PNEUMONIA [None]
